FAERS Safety Report 10081146 (Version 1)
Quarter: 2014Q2

REPORT INFORMATION
  Report Type: Spontaneous
  Country: NO (occurrence: NO)
  Receive Date: 20140416
  Receipt Date: 20140416
  Transmission Date: 20141212
  Serious: Yes (Life-Threatening, Hospitalization, Disabling)
  Sender: FDA-Public Use
  Company Number: NO-MYLANLABS-2014S1008006

PATIENT
  Age: 74 Year
  Sex: Male

DRUGS (5)
  1. METFORMIN [Suspect]
     Indication: TYPE 2 DIABETES MELLITUS
     Dosage: 1 G + 0,5 G + 1 G INCR FROM 2 G 20140110
     Route: 048
  2. SOMAC [Concomitant]
     Route: 048
  3. KALEORID [Concomitant]
     Route: 048
  4. PARACET /00020001/ [Concomitant]
     Dosage: 1 G UP TO X 2
     Route: 048
  5. IMOVANE [Concomitant]
     Route: 048

REACTIONS (3)
  - Renal failure [Recovered/Resolved with Sequelae]
  - Diarrhoea [Unknown]
  - Lactic acidosis [Recovered/Resolved with Sequelae]
